FAERS Safety Report 6888921-1 (Version None)
Quarter: 2010Q3

REPORT INFORMATION
  Report Type: 
  Country: None (occurrence: None)
  Receive Date: 20100730
  Receipt Date: 20100725
  Transmission Date: 20110219
  Serious: Yes (Disabling)
  Sender: FDA-Public Use
  Company Number: IL-MERCK-1007ISR00045

PATIENT
  Sex: Male

DRUGS (3)
  1. PROPECIA [Suspect]
     Indication: ALOPECIA
     Route: 048
  2. MINOXIDIL [Suspect]
     Indication: ALOPECIA
     Route: 061
  3. MINOXIDIL [Suspect]
     Route: 061

REACTIONS (2)
  - ALOPECIA [None]
  - MAJOR DEPRESSION [None]
